FAERS Safety Report 7552173-X (Version None)
Quarter: 2011Q2

REPORT INFORMATION
  Report Type: 
  Country: None (occurrence: None)
  Receive Date: 20110616
  Receipt Date: 20040729
  Transmission Date: 20111010
  Serious: Yes (Death, Hospitalization)
  Sender: FDA-Public Use
  Company Number: PHHO2004JP02643

PATIENT
  Sex: Female

DRUGS (5)
  1. LOCHOLEST [Suspect]
     Indication: HYPERCHOLESTEROLAEMIA
     Dosage: 20 MG, QD
     Route: 048
     Dates: start: 20001108
  2. TICLOPIDINE HCL [Concomitant]
     Indication: CEREBRAL INFARCTION
     Dates: start: 20001108
  3. INSULIN [Concomitant]
     Indication: DIABETES MELLITUS
     Dates: start: 20020422
  4. ADALAT [Concomitant]
     Indication: HYPERTENSION
     Dates: start: 20020501
  5. GLYBURIDE [Concomitant]
     Dates: start: 20001108, end: 20020421

REACTIONS (2)
  - PANCREATIC CARCINOMA [None]
  - BLOOD GLUCOSE ABNORMAL [None]
